FAERS Safety Report 23762338 (Version 1)
Quarter: 2024Q2

REPORT INFORMATION
  Report Type: Spontaneous
  Country: JP (occurrence: JP)
  Receive Date: 20240419
  Receipt Date: 20240419
  Transmission Date: 20240716
  Serious: Yes (Hospitalization)
  Sender: FDA-Public Use
  Company Number: JP-Eisai-202400718_LEN-RCC_P_1

PATIENT
  Age: 66 Year
  Sex: Male
  Weight: 62 kg

DRUGS (8)
  1. LENVIMA [Suspect]
     Active Substance: LENVATINIB
     Indication: Renal cancer
     Dosage: DOSE AND FREQUENCY UNKNOWN
     Route: 048
  2. LENVIMA [Suspect]
     Active Substance: LENVATINIB
     Route: 048
     Dates: start: 20230602, end: 20230714
  3. KEYTRUDA [Suspect]
     Active Substance: PEMBROLIZUMAB
     Indication: Renal cancer
     Dosage: DOSE AND FREQUENCY UNKNOWN
     Route: 041
  4. KEYTRUDA [Suspect]
     Active Substance: PEMBROLIZUMAB
     Route: 041
     Dates: start: 20230602, end: 20230714
  5. EDOXABAN TOSYLATE [Concomitant]
     Active Substance: EDOXABAN TOSYLATE
     Indication: Product used for unknown indication
     Dosage: FREQUENCY UNKNOWN
     Route: 048
  6. LEVOTHYROXINE [Concomitant]
     Active Substance: LEVOTHYROXINE\LEVOTHYROXINE SODIUM
     Indication: Product used for unknown indication
     Dosage: FREQUENCY UNKNOWN
     Route: 048
  7. URSODIOL [Concomitant]
     Active Substance: URSODIOL
     Indication: Product used for unknown indication
     Dosage: FREQUENCY UNKNOWN
     Route: 048
  8. ESOMEPRAZOLE [Concomitant]
     Active Substance: ESOMEPRAZOLE
     Indication: Product used for unknown indication
     Dosage: FREQUENCY UNKNOWN
     Route: 048

REACTIONS (2)
  - Interstitial lung disease [Recovering/Resolving]
  - Hypothyroidism [Recovered/Resolved]

NARRATIVE: CASE EVENT DATE: 20230714
